FAERS Safety Report 6978940-9 (Version None)
Quarter: 2010Q3

REPORT INFORMATION
  Report Type: 
  Country: None (occurrence: None)
  Receive Date: 20100913
  Receipt Date: 20100901
  Transmission Date: 20110219
  Serious: No
  Sender: FDA-Public Use
  Company Number: JP-MERCK-1008USA00856

PATIENT
  Age: 74 Year
  Sex: Female

DRUGS (1)
  1. SINEMET [Suspect]
     Indication: PARKINSON'S DISEASE
     Dosage: DAILY DOSE UNKNOWN
     Route: 048
     Dates: start: 20100722, end: 20100802

REACTIONS (3)
  - CONVERSION DISORDER [None]
  - LOSS OF CONSCIOUSNESS [None]
  - ORTHOSTATIC HYPOTENSION [None]
